FAERS Safety Report 6151837-2 (Version None)
Quarter: 2009Q2

REPORT INFORMATION
  Report Type: 
  Country: None (occurrence: None)
  Receive Date: 20090408
  Receipt Date: 20090327
  Transmission Date: 20091009
  Serious: Yes (Other)
  Sender: FDA-Public Use
  Company Number: 1000005643

PATIENT
  Sex: Female

DRUGS (3)
  1. ESCITALOPRAM [Suspect]
     Dosage: 20 MG (20 MG, 1 IN 1 D), ORAL
     Route: 048
     Dates: start: 20090101, end: 20090101
  2. ESCITALOPRAM [Suspect]
     Dosage: 10 MG (20 MG, 1 IN 1 D), ORAL
     Route: 048
     Dates: start: 20090101, end: 20090326
  3. ESCITALOPRAM [Suspect]
     Dosage: (1 IN 1 D), ORAL
     Route: 048
     Dates: start: 20090125, end: 20090101

REACTIONS (2)
  - HAEMATOMA [None]
  - URINARY RETENTION [None]
